FAERS Safety Report 4724684-3 (Version None)
Quarter: 2005Q3

REPORT INFORMATION
  Report Type: 
  Country: None (occurrence: None)
  Receive Date: 20050719
  Receipt Date: 20050719
  Transmission Date: 20060218
  Serious: Yes (Other)
  Sender: FDA-Public Use
  Company Number: None

PATIENT
  Age: 55 Year
  Sex: Male
  Weight: 77.1115 kg

DRUGS (1)
  1. CYMBALTA [Suspect]
     Dosage: 1 TIME -LAST
     Dates: start: 20050705, end: 20050705

REACTIONS (2)
  - FEELING ABNORMAL [None]
  - PANIC ATTACK [None]
